FAERS Safety Report 5776502-2 (Version None)
Quarter: 2008Q2

REPORT INFORMATION
  Report Type: 
  Country: None (occurrence: None)
  Receive Date: 20080617
  Receipt Date: 20080617
  Transmission Date: 20081010
  Serious: Yes (Other)
  Sender: FDA-Public Use
  Company Number: None

PATIENT
  Age: 52 Year
  Sex: Female
  Weight: 96.1626 kg

DRUGS (1)
  1. OXYTROL [Suspect]
     Indication: INCONTINENCE
     Dosage: PATCH 2/WEEK TRANSDERMAL
     Route: 062
     Dates: start: 20080603, end: 20080612

REACTIONS (1)
  - DRUG HYPERSENSITIVITY [None]
